FAERS Safety Report 4327626-8 (Version None)
Quarter: 2004Q1

REPORT INFORMATION
  Report Type: 
  Country: None (occurrence: None)
  Receive Date: 20040331
  Receipt Date: 20040319
  Transmission Date: 20041129
  Serious: Yes (Other)
  Sender: FDA-Public Use
  Company Number: PHBS2004JP03977

PATIENT
  Age: 64 Year
  Sex: Male

DRUGS (4)
  1. VOLTAREN [Suspect]
     Indication: RHEUMATOID ARTHRITIS
     Dates: start: 19900101, end: 20020201
  2. ANTIPYRETIC, ANALGESICS AND ANTI-INFLAMMATORY AGENTS [Suspect]
     Indication: RHEUMATOID ARTHRITIS
     Dates: start: 19970101, end: 20020201
  3. ADRENOCORTICAL HORMONE PREPARATIONS [Concomitant]
     Indication: RHEUMATOID ARTHRITIS
     Dates: start: 19970101, end: 20020201
  4. INSULIN [Concomitant]
     Dates: start: 19900101, end: 20020101

REACTIONS (2)
  - CORONARY ARTERY THROMBOSIS [None]
  - STENT OCCLUSION [None]
